FAERS Safety Report 20659660 (Version 2)
Quarter: 2022Q2

REPORT INFORMATION
  Report Type: Report from Study
  Country: FR (occurrence: FR)
  Receive Date: 20220331
  Receipt Date: 20220415
  Transmission Date: 20220720
  Serious: Yes (Other)
  Sender: FDA-Public Use
  Company Number: FR-AMGEN-FRANI2022000357

PATIENT
  Age: 65 Year
  Sex: Male

DRUGS (4)
  1. AMG-510 [Suspect]
     Active Substance: AMG-510
     Indication: Non-small cell lung cancer metastatic
     Dosage: 960 MILLIGRAM
     Route: 065
  2. AMG-510 [Suspect]
     Active Substance: AMG-510
     Indication: K-ras gene mutation
  3. KEPPRA [Concomitant]
     Active Substance: LEVETIRACETAM
     Indication: Non-small cell lung cancer metastatic
     Dosage: 500 MILLIGRAM, QD
     Route: 048
     Dates: start: 20211014
  4. KEPPRA [Concomitant]
     Active Substance: LEVETIRACETAM
     Indication: K-ras gene mutation

REACTIONS (7)
  - Urinary retention [Not Recovered/Not Resolved]
  - Complication associated with device [Unknown]
  - Orthostatic hypotension [Recovered/Resolved]
  - Vertigo [Recovered/Resolved]
  - Fatigue [Recovered/Resolved]
  - Diarrhoea [Recovered/Resolved]
  - Urinary tract infection bacterial [Not Recovered/Not Resolved]

NARRATIVE: CASE EVENT DATE: 20211215
